FAERS Safety Report 13639320 (Version 1)
Quarter: 2017Q2

REPORT INFORMATION
  Report Type: Spontaneous
  Country: US (occurrence: US)
  Receive Date: 20170609
  Receipt Date: 20170609
  Transmission Date: 20170830
  Serious: No
  Sender: FDA-Public Use
  Company Number: US-ROCHE-783825

PATIENT
  Sex: Male
  Weight: 61.2 kg

DRUGS (3)
  1. AMBIEN [Concomitant]
     Active Substance: ZOLPIDEM TARTRATE
     Route: 065
  2. KLONOPIN [Suspect]
     Active Substance: CLONAZEPAM
     Indication: ANXIETY
     Dosage: DATE OF USE:: 3 YEARS
     Route: 048
  3. MELATONIN [Concomitant]
     Active Substance: MELATONIN
     Route: 065

REACTIONS (1)
  - Withdrawal syndrome [Unknown]
